FAERS Safety Report 11422072 (Version 2)
Quarter: 2015Q3

REPORT INFORMATION
  Report Type: Spontaneous
  Country: US (occurrence: None)
  Receive Date: 20150825
  Receipt Date: 20150921
  Transmission Date: 20151125
  Serious: Yes (Other)
  Sender: FDA-Public Use
  Company Number: US2015117441

PATIENT
  Age: 76 Year
  Sex: Female

DRUGS (1)
  1. SENSODYNE REPAIR AND PROTECT EXTRA FRESH [Suspect]
     Active Substance: STANNOUS FLUORIDE
     Indication: PRODUCT USED FOR UNKNOWN INDICATION

REACTIONS (4)
  - Rectal obstruction [None]
  - Gastric disorder [None]
  - Constipation [None]
  - Vomiting [None]
